FAERS Safety Report 25598831 (Version 2)
Quarter: 2025Q3

REPORT INFORMATION
  Report Type: Spontaneous
  Country: JP (occurrence: JP)
  Receive Date: 20250724
  Receipt Date: 20250828
  Transmission Date: 20251021
  Serious: Yes (Other)
  Sender: TAKEDA
  Company Number: JP-TAKEDA-2025TJP007371

PATIENT
  Age: 7 Decade
  Sex: Female

DRUGS (5)
  1. FRUZAQLA [Suspect]
     Active Substance: FRUQUINTINIB
     Indication: Colon cancer
     Dosage: 5 MILLIGRAM, QD
     Dates: start: 20250109
  2. FRUZAQLA [Suspect]
     Active Substance: FRUQUINTINIB
  3. AMLODIPINE [Concomitant]
     Active Substance: AMLODIPINE BESYLATE
  4. AMLODIPINE [Concomitant]
     Active Substance: AMLODIPINE BESYLATE
  5. AZILSARTAN KAMEDOXOMIL [Concomitant]
     Active Substance: AZILSARTAN KAMEDOXOMIL

REACTIONS (6)
  - Hypertension [Recovering/Resolving]
  - Colon cancer [Recovering/Resolving]
  - Hydronephrosis [Recovering/Resolving]
  - Malaise [Recovering/Resolving]
  - Coronavirus infection [Recovered/Resolved]
  - Oedema [Recovering/Resolving]

NARRATIVE: CASE EVENT DATE: 20250204
